FAERS Safety Report 6126610-1 (Version None)
Quarter: 2009Q1

REPORT INFORMATION
  Report Type: 
  Country: None (occurrence: None)
  Receive Date: 20090320
  Receipt Date: 20090305
  Transmission Date: 20090719
  Serious: Yes (Hospitalization)
  Sender: FDA-Public Use
  Company Number: FR-PFIZER INC-2009180008

PATIENT

DRUGS (1)
  1. NEURONTIN [Suspect]
     Route: 048

REACTIONS (4)
  - ASTERIXIS [None]
  - ASTHENIA [None]
  - CONFUSIONAL STATE [None]
  - HEPATITIS CHOLESTATIC [None]
